FAERS Safety Report 6554981-0 (Version None)
Quarter: 2010Q1

REPORT INFORMATION
  Report Type: 
  Country: None (occurrence: None)
  Receive Date: 20100126
  Receipt Date: 20100126
  Transmission Date: 20100710
  Serious: Yes (Other)
  Sender: FDA-Public Use
  Company Number: None

PATIENT
  Age: 29 Year
  Sex: Female
  Weight: 98.8842 kg

DRUGS (1)
  1. FLUOXETINE [Suspect]
     Indication: SCHIZOAFFECTIVE DISORDER
     Dosage: 3 TABS AM PO
     Route: 048
     Dates: start: 20010901, end: 20011031

REACTIONS (4)
  - DIZZINESS [None]
  - DYSPHORIA [None]
  - PRODUCT SUBSTITUTION ISSUE [None]
  - PSYCHIATRIC DECOMPENSATION [None]
